FAERS Safety Report 23237293 (Version 1)
Quarter: 2023Q4

REPORT INFORMATION
  Report Type: Spontaneous
  Country: None (occurrence: NZ)
  Receive Date: 20231128
  Receipt Date: 20231128
  Transmission Date: 20240110
  Serious: Yes (Other)
  Sender: FDA-Public Use
  Company Number: NZ-Stallergenes SAS-2148757

PATIENT
  Age: 36 Year
  Sex: Female

DRUGS (1)
  1. ORALAIR [Suspect]
     Active Substance: ANTHOXANTHUM ODORATUM POLLEN\DACTYLIS GLOMERATA POLLEN\LOLIUM PERENNE POLLEN\PHLEUM PRATENSE POLLEN\
     Indication: Rhinitis allergic
     Route: 060
     Dates: start: 20231001, end: 20231011

REACTIONS (12)
  - Oral discomfort [Recovered/Resolved]
  - Hypoaesthesia oral [Recovered/Resolved]
  - Oedema mouth [Recovered/Resolved]
  - Tongue oedema [Recovered/Resolved]
  - Eye oedema [Unknown]
  - Eye pruritus [Unknown]
  - Periorbital swelling [Unknown]
  - Dyspepsia [Unknown]
  - Vomiting [Unknown]
  - Throat irritation [Unknown]
  - Pharyngeal oedema [Unknown]
  - Throat tightness [Unknown]

NARRATIVE: CASE EVENT DATE: 20231001
